FAERS Safety Report 12982687 (Version 4)
Quarter: 2017Q1

REPORT INFORMATION
  Report Type: Spontaneous
  Country: CA (occurrence: CA)
  Receive Date: 20161129
  Receipt Date: 20170123
  Transmission Date: 20170428
  Serious: Yes (Other)
  Sender: FDA-Public Use
  Company Number: CA-GLAXOSMITHKLINE-CA2016GSK138480

PATIENT
  Sex: Male

DRUGS (3)
  1. NUCALA [Suspect]
     Active Substance: MEPOLIZUMAB
     Indication: ASTHMA
     Dosage: 100 MG, Z
     Route: 042
     Dates: start: 20160830, end: 20161220
  2. CORTISONE [Concomitant]
     Active Substance: CORTISONE\HYDROCORTISONE
     Dosage: 50 MG, UNK
  3. NUCALA [Suspect]
     Active Substance: MEPOLIZUMAB
     Dosage: UNK

REACTIONS (18)
  - Back pain [Unknown]
  - Cough [Unknown]
  - Asthmatic crisis [Not Recovered/Not Resolved]
  - Injection site pain [Recovered/Resolved]
  - Condition aggravated [Unknown]
  - Throat irritation [Recovered/Resolved]
  - Nasal congestion [Not Recovered/Not Resolved]
  - Eye pain [Recovered/Resolved]
  - Secretion discharge [Recovered/Resolved]
  - Increased bronchial secretion [Unknown]
  - Productive cough [Unknown]
  - Drug ineffective [Not Recovered/Not Resolved]
  - Headache [Not Recovered/Not Resolved]
  - Nasopharyngitis [Not Recovered/Not Resolved]
  - Oropharyngeal pain [Not Recovered/Not Resolved]
  - Polyp [Unknown]
  - Increased upper airway secretion [Unknown]
  - Sputum increased [Unknown]

NARRATIVE: CASE EVENT DATE: 2016
